FAERS Safety Report 13232228 (Version 1)
Quarter: 2017Q1

REPORT INFORMATION
  Report Type: Report from Study
  Country: AU (occurrence: AU)
  Receive Date: 20170214
  Receipt Date: 20170214
  Transmission Date: 20170428
  Serious: Yes (Hospitalization)
  Sender: FDA-Public Use
  Company Number: PHHO2000AU09409

PATIENT
  Age: 22 Year
  Sex: Male
  Weight: 54 kg

DRUGS (1)
  1. CGP 42446 [Suspect]
     Active Substance: ZOLEDRONATE DISODIUM
     Indication: OSTEOPENIA
     Dosage: 4 MG, UNK
     Route: 042
     Dates: start: 20001019, end: 20001019

REACTIONS (4)
  - Influenza like illness [Recovering/Resolving]
  - Pyrexia [Recovering/Resolving]
  - Arthralgia [Recovering/Resolving]
  - Myalgia [Recovering/Resolving]

NARRATIVE: CASE EVENT DATE: 20001020
